FAERS Safety Report 20345556 (Version 2)
Quarter: 2022Q1

REPORT INFORMATION
  Report Type: Report from Study
  Country: FR (occurrence: FR)
  Receive Date: 20220118
  Receipt Date: 20220119
  Transmission Date: 20220423
  Serious: Yes (Hospitalization)
  Sender: FDA-Public Use
  Company Number: FR-BAYER-2021A275203

PATIENT
  Age: 54 Year
  Sex: Female
  Weight: 55 kg

DRUGS (5)
  1. REGORAFENIB [Suspect]
     Active Substance: REGORAFENIB
     Indication: Leiomyosarcoma
     Dosage: UNK
     Route: 048
     Dates: start: 20211215
  2. REGORAFENIB [Suspect]
     Active Substance: REGORAFENIB
     Indication: Leiomyosarcoma
     Dosage: 120 MG
     Route: 048
     Dates: start: 20211225
  3. LEVOTHYROXINE [Concomitant]
     Active Substance: LEVOTHYROXINE
     Indication: Hypothyroidism
     Dosage: 150 ?G, QD
     Dates: start: 1989
  4. PHYTOCAN [Concomitant]
     Dosage: 2 VIALS
     Dates: start: 20211228, end: 20211228
  5. SODIUM CHLORIDE [Concomitant]
     Active Substance: SODIUM CHLORIDE
     Dosage: 1.5 L, QD
     Dates: start: 20211227

REACTIONS (3)
  - Toxic skin eruption [Not Recovered/Not Resolved]
  - Capillary leak syndrome [Not Recovered/Not Resolved]
  - Drug reaction with eosinophilia and systemic symptoms [Not Recovered/Not Resolved]

NARRATIVE: CASE EVENT DATE: 20211227
